FAERS Safety Report 19734275 (Version 1)
Quarter: 2021Q3

REPORT INFORMATION
  Report Type: Spontaneous
  Country: US (occurrence: US)
  Receive Date: 20210823
  Receipt Date: 20210823
  Transmission Date: 20211014
  Serious: Yes (Hospitalization)
  Sender: FDA-Public Use
  Company Number: US-ABBVIE-21K-163-4045008-00

PATIENT
  Age: 71 Year
  Sex: Male

DRUGS (2)
  1. HUMIRA [Suspect]
     Active Substance: ADALIMUMAB
     Indication: PSORIASIS
     Route: 058
     Dates: start: 2015, end: 2020
  2. HUMIRA [Suspect]
     Active Substance: ADALIMUMAB
     Route: 058
     Dates: start: 20210817

REACTIONS (3)
  - Renal failure [Recovered/Resolved]
  - Pain of skin [Not Recovered/Not Resolved]
  - Device use error [Recovered/Resolved]

NARRATIVE: CASE EVENT DATE: 20210817
